FAERS Safety Report 8452718-1 (Version None)
Quarter: 2012Q2

REPORT INFORMATION
  Report Type: 
  Country: None (occurrence: None)
  Receive Date: 20120620
  Receipt Date: 20120615
  Transmission Date: 20120825
  Serious: Yes (Other)
  Sender: FDA-Public Use
  Company Number: US-ABBOTT-12P-163-0946363-00

PATIENT
  Age: 30 Year
  Sex: Female

DRUGS (5)
  1. REYATAZ [Suspect]
     Dosage: 300 MG DAILY
     Route: 048
     Dates: start: 20120504
  2. TRUVADA [Suspect]
     Indication: PRODUCT USED FOR UNKNOWN INDICATION
     Route: 048
     Dates: start: 20111031
  3. NORVIR [Suspect]
     Indication: PRODUCT USED FOR UNKNOWN INDICATION
     Dosage: 100 MG DAILY
     Route: 048
     Dates: start: 20111031
  4. REYATAZ [Suspect]
     Indication: PRODUCT USED FOR UNKNOWN INDICATION
     Dosage: 300 MG DAILY
     Route: 048
     Dates: start: 20111031, end: 20120115
  5. REYATAZ [Suspect]
     Dosage: 400 MG DAILY
     Route: 048
     Dates: start: 20120115, end: 20120503

REACTIONS (1)
  - STILLBIRTH [None]
